FAERS Safety Report 6752305-7 (Version None)
Quarter: 2010Q2

REPORT INFORMATION
  Report Type: 
  Country: None (occurrence: None)
  Receive Date: 20100602
  Receipt Date: 20100521
  Transmission Date: 20101027
  Serious: Yes (Disabling, Other)
  Sender: FDA-Public Use
  Company Number: US-JNJFOC-20091006573

PATIENT
  Sex: Female

DRUGS (6)
  1. REMICADE [Suspect]
     Indication: BEHCET'S SYNDROME
     Route: 042
  2. SOLU-MEDROL [Concomitant]
     Indication: UVEITIS
  3. SOLU-MEDROL [Concomitant]
     Indication: ARTHRITIS
  4. SOLU-MEDROL [Concomitant]
     Indication: BEHCET'S SYNDROME
  5. ITRACONAZOLE [Concomitant]
     Indication: HISTOPLASMOSIS
  6. GABAPENTIN [Concomitant]
     Indication: PAIN

REACTIONS (2)
  - CONVULSION [None]
  - DEMYELINATION [None]
